FAERS Safety Report 8312115-6 (Version None)
Quarter: 2012Q2

REPORT INFORMATION
  Report Type: 
  Country: None (occurrence: None)
  Receive Date: 20120425
  Receipt Date: 20110808
  Transmission Date: 20120825
  Serious: Yes (Other)
  Sender: FDA-Public Use
  Company Number: US-TEVA-US016397

PATIENT
  Age: 41 Year
  Sex: Female
  Weight: 50 kg

DRUGS (3)
  1. PROVIGIL [Suspect]
     Indication: CHRONIC FATIGUE SYNDROME
     Dosage: 100 MILLIGRAM;
     Route: 048
     Dates: start: 20040501, end: 20041101
  2. PROVIGIL [Suspect]
     Dosage: 50MG - 100MG (1/2 TABLET) PRN
     Route: 048
     Dates: start: 20060106
  3. PROVIGIL [Suspect]
     Dosage: 400 MILLIGRAM;
     Route: 048
     Dates: start: 20041101, end: 20060101

REACTIONS (5)
  - CONFUSIONAL STATE [None]
  - MEMORY IMPAIRMENT [None]
  - EYE IRRITATION [None]
  - DRY MOUTH [None]
  - ACCIDENTAL OVERDOSE [None]
